FAERS Safety Report 12620521 (Version 2)
Quarter: 2019Q4

REPORT INFORMATION
  Report Type: Spontaneous
  Country: NL (occurrence: NL)
  Receive Date: 20160804
  Receipt Date: 20191031
  Transmission Date: 20200122
  Serious: Yes (Life-Threatening, Other)
  Sender: FDA-Public Use
  Company Number: NL-009507513-1608NLD001417

PATIENT
  Age: 2 Year
  Sex: Male

DRUGS (6)
  1. HYDROCHLOORTHIAZIDE [Interacting]
     Active Substance: HYDROCHLOROTHIAZIDE
     Indication: FLUID RETENTION
     Dosage: 1 MG/KG/DAY
     Route: 048
     Dates: start: 20160623, end: 20160707
  2. DIAZOXIDE [Interacting]
     Active Substance: DIAZOXIDE
     Dosage: 10 MG/KG/DAY
     Route: 048
  3. HYDROCHLOORTHIAZIDE [Interacting]
     Active Substance: HYDROCHLOROTHIAZIDE
     Dosage: MAXIMUM DOSE OF 3 MG/KG/DAY
     Route: 048
  4. DIAZOXIDE [Suspect]
     Active Substance: DIAZOXIDE
     Indication: HYPERINSULINAEMIA
     Dosage: 5 MG/KG/DAY
     Route: 048
     Dates: start: 20160623, end: 20160706
  5. HYDROCHLOORTHIAZIDE [Interacting]
     Active Substance: HYDROCHLOROTHIAZIDE
     Dosage: 2 MILLIGRAM/KILOGRAM, QD
     Route: 048
  6. KEPPRA [Concomitant]
     Active Substance: LEVETIRACETAM
     Route: 048

REACTIONS (2)
  - Thrombocytopenia [Recovered/Resolved]
  - Drug interaction [Recovered/Resolved]

NARRATIVE: CASE EVENT DATE: 20160705
